FAERS Safety Report 16803668 (Version 3)
Quarter: 2019Q4

REPORT INFORMATION
  Report Type: Spontaneous
  Country: JP (occurrence: JP)
  Receive Date: 20190913
  Receipt Date: 20191223
  Transmission Date: 20200122
  Serious: Yes (Death, Life-Threatening, Hospitalization, Disabling)
  Sender: FDA-Public Use
  Company Number: JP-ASTRAZENECA-2019SF29200

PATIENT
  Age: 31981 Day
  Sex: Male
  Weight: 51 kg

DRUGS (3)
  1. TAGRISSO [Suspect]
     Active Substance: OSIMERTINIB
     Indication: NON-SMALL CELL LUNG CANCER
     Route: 048
     Dates: start: 20190619, end: 20190826
  2. PREDONINE [Suspect]
     Active Substance: PREDNISOLONE
     Dosage: 40.0MG UNKNOWN
     Route: 048
     Dates: start: 20190830, end: 20190912
  3. PREDONINE [Suspect]
     Active Substance: PREDNISOLONE
     Dosage: 30.0MG UNKNOWN
     Route: 048
     Dates: start: 20190913, end: 20190917

REACTIONS (5)
  - Respiratory failure [Fatal]
  - Cytomegalovirus infection [Not Recovered/Not Resolved]
  - Pneumothorax [Not Recovered/Not Resolved]
  - Altered state of consciousness [Fatal]
  - Interstitial lung disease [Fatal]

NARRATIVE: CASE EVENT DATE: 20190814
